FAERS Safety Report 7231865-6 (Version None)
Quarter: 2011Q1

REPORT INFORMATION
  Report Type: 
  Country: None (occurrence: None)
  Receive Date: 20110118
  Receipt Date: 20101222
  Transmission Date: 20110831
  Serious: Yes (Death)
  Sender: FDA-Public Use
  Company Number: -VALEANT-2011VX000002

PATIENT
  Sex: Female
  Weight: 2 kg

DRUGS (11)
  1. BETAMETHASONE [Suspect]
     Route: 065
  2. PREDNISOLONE [Suspect]
     Route: 048
  3. PHENYLEPHRINE [Suspect]
     Route: 042
  4. PYRIDOSTIGMINE BROMIDE [Suspect]
     Route: 048
  5. IMMUNOGLOBULINS [Suspect]
     Route: 042
  6. LIDOCAINE HYDROCHLORIDE IN PLASTIC CONTAINER [Suspect]
     Route: 058
  7. INSULIN [Suspect]
     Route: 065
  8. PREDNISOLONE [Suspect]
     Route: 048
  9. HYDROCORTISONE [Suspect]
     Route: 042
  10. BUPIVACAINE HCL [Suspect]
     Route: 037
  11. DIAMORPHINE [Suspect]
     Route: 037

REACTIONS (5)
  - THYMUS DISORDER [None]
  - NODULE [None]
  - HYPERGLYCAEMIA [None]
  - POLYHYDRAMNIOS [None]
  - CAESAREAN SECTION [None]
